FAERS Safety Report 15555908 (Version 1)
Quarter: 2018Q4

REPORT INFORMATION
  Report Type: Report from Study
  Country: IN (occurrence: IN)
  Receive Date: 20181026
  Receipt Date: 20181026
  Transmission Date: 20190205
  Serious: Yes (Other)
  Sender: FDA-Public Use
  Company Number: IN-MYLANLABS-2018M1079423

PATIENT
  Age: 13 Year
  Sex: Male

DRUGS (6)
  1. VINCRISTINE [Suspect]
     Active Substance: VINCRISTINE
     Indication: PRIMITIVE NEUROECTODERMAL TUMOUR
     Dosage: PART OF VAD CHEMOTHERAPY
     Route: 065
  2. DEXAMETHASONE. [Suspect]
     Active Substance: DEXAMETHASONE
     Indication: PRIMITIVE NEUROECTODERMAL TUMOUR
     Dosage: PART OF VCD CHEMOTHERAPY; EVERY THREE WEEKS
     Route: 065
  3. DOXORUBICIN [Suspect]
     Active Substance: DOXORUBICIN
     Indication: PRIMITIVE NEUROECTODERMAL TUMOUR
     Dosage: PART OF VAD CHEMOTHERAPY
     Route: 065
  4. CYCLOPHOSPHAMIDE. [Suspect]
     Active Substance: CYCLOPHOSPHAMIDE
     Indication: PRIMITIVE NEUROECTODERMAL TUMOUR
     Dosage: PART OF VCD CHEMOTHERAPY; EVERY THREE WEEKS
     Route: 065
  5. DEXAMETHASONE. [Suspect]
     Active Substance: DEXAMETHASONE
     Dosage: PART OF VAD CHEMOTHERAPY
     Route: 065
  6. VELCADE [Suspect]
     Active Substance: BORTEZOMIB
     Indication: PRIMITIVE NEUROECTODERMAL TUMOUR
     Dosage: PART OF VCD CHEMOTHERAPY; EVERY THREE WEEKS
     Route: 065

REACTIONS (2)
  - Parvovirus B19 infection [Not Recovered/Not Resolved]
  - Bicytopenia [Unknown]

NARRATIVE: CASE EVENT DATE: 20150312
